FAERS Safety Report 13720976 (Version 1)
Quarter: 2017Q3

REPORT INFORMATION
  Report Type: Spontaneous
  Country: IT (occurrence: IT)
  Receive Date: 20170706
  Receipt Date: 20170706
  Transmission Date: 20171127
  Serious: Yes (Hospitalization)
  Sender: FDA-Public Use
  Company Number: IT-AUROBINDO-AUR-APL-2014-08680

PATIENT
  Age: 57 Year
  Sex: Male

DRUGS (3)
  1. LAMOTRIGINE. [Concomitant]
     Active Substance: LAMOTRIGINE
     Indication: POST-TRAUMATIC EPILEPSY
     Dosage: 300 MG, UNK
     Route: 048
  2. AMOXICILLIN. [Suspect]
     Active Substance: AMOXICILLIN
     Indication: PRODUCT USED FOR UNKNOWN INDICATION
     Dosage: 1 DF DOSAGE FORM TOTAL, UNK
     Route: 048
     Dates: start: 20140517, end: 20140517
  3. DEPAKIN CHRONO                     /00228502/ [Concomitant]
     Active Substance: VALPROATE SODIUM
     Indication: POST-TRAUMATIC EPILEPSY
     Dosage: 500 MG, 3 DF DOSAGE FORM
     Route: 048

REACTIONS (2)
  - Pyrexia [Recovering/Resolving]
  - Rash morbilliform [Recovering/Resolving]

NARRATIVE: CASE EVENT DATE: 20140517
